FAERS Safety Report 6678901-3 (Version None)
Quarter: 2010Q2

REPORT INFORMATION
  Report Type: 
  Country: None (occurrence: None)
  Receive Date: 20100412
  Receipt Date: 20100412
  Transmission Date: 20101027
  Serious: No
  Sender: FDA-Public Use
  Company Number: None

PATIENT
  Age: 44 Year
  Sex: Female
  Weight: 75.2971 kg

DRUGS (2)
  1. LEVAQUIN [Suspect]
     Indication: INFECTION IN AN IMMUNOCOMPROMISED HOST
     Dosage: 500 MG DAILY PO
     Route: 048
     Dates: start: 20100326, end: 20100410
  2. LEVAQUIN [Suspect]
     Indication: SINUSITIS BACTERIAL
     Dosage: 500 MG DAILY PO
     Route: 048
     Dates: start: 20100326, end: 20100410

REACTIONS (1)
  - TENDONITIS [None]
